FAERS Safety Report 20526727 (Version 1)
Quarter: 2022Q1

REPORT INFORMATION
  Report Type: Spontaneous
  Country: US (occurrence: None)
  Receive Date: 20220227
  Receipt Date: 20220227
  Transmission Date: 20220423
  Serious: Yes (Life-Threatening, Other)
  Sender: FDA-Public Use
  Company Number: None

PATIENT
  Age: 80 Year
  Sex: Female
  Weight: 72 kg

DRUGS (16)
  1. SOLIFENACIN SUCCINATE [Suspect]
     Active Substance: SOLIFENACIN SUCCINATE
     Indication: Incontinence
     Dosage: OTHER QUANTITY : 1 TABLET(S);?FREQUENCY : AT BEDTIME;?
     Route: 048
     Dates: start: 20220117, end: 20220208
  2. AMLODIPINE [Concomitant]
     Active Substance: AMLODIPINE BESYLATE
  3. bisoprolo fumerate [Concomitant]
  4. LOSARTAN [Concomitant]
     Active Substance: LOSARTAN
  5. NITROFURANTOIN MACROCRYSTALS [Concomitant]
     Active Substance: NITROFURANTOIN
  6. pantroprazole [Concomitant]
  7. XARELTO [Concomitant]
     Active Substance: RIVAROXABAN
  8. dorzolmide hcl [Concomitant]
  9. LATANOPROST [Concomitant]
     Active Substance: LATANOPROST
  10. TRIAMCINOLONE ACETONIDE [Suspect]
     Active Substance: TRIAMCINOLONE ACETONIDE
  11. KETOCONAZOLE [Concomitant]
  12. CALCIUM [Concomitant]
     Active Substance: CALCIUM
  13. CETIRIZINE HCL [Concomitant]
     Active Substance: CETIRIZINE HYDROCHLORIDE
  14. COENZYME Q10 [Concomitant]
     Active Substance: DIETARY SUPPLEMENT\UBIDECARENONE
  15. CHOLECALCIFEROL [Concomitant]
     Active Substance: CHOLECALCIFEROL
  16. systane drops [Concomitant]

REACTIONS (14)
  - Dry mouth [None]
  - Chapped lips [None]
  - Lip haemorrhage [None]
  - Upper-airway cough syndrome [None]
  - Dyspnoea [None]
  - Myositis [None]
  - Condition aggravated [None]
  - Muscular weakness [None]
  - Dysphagia [None]
  - Visual impairment [None]
  - Dyspepsia [None]
  - Eczema [None]
  - Hypersensitivity [None]
  - Throat tightness [None]

NARRATIVE: CASE EVENT DATE: 20220210
